FAERS Safety Report 7034663-1 (Version None)
Quarter: 2010Q4

REPORT INFORMATION
  Report Type: 
  Country: None (occurrence: None)
  Receive Date: 20101008
  Receipt Date: 20100930
  Transmission Date: 20110411
  Serious: Yes (Hospitalization)
  Sender: FDA-Public Use
  Company Number: JP-NOVOPROD-312851

PATIENT
  Age: 62 Year
  Sex: Female
  Weight: 49 kg

DRUGS (6)
  1. VICTOZA [Suspect]
     Indication: TYPE 2 DIABETES MELLITUS
     Dosage: 0.3 MG, QD
     Route: 058
     Dates: start: 20100714, end: 20100808
  2. VICTOZA [Suspect]
     Dosage: 0.6 MG, QD
     Route: 058
     Dates: start: 20100728, end: 20100809
  3. LIPITOR [Concomitant]
     Dosage: 2.5 MG, QD
     Route: 048
  4. HOKUNALIN [Concomitant]
  5. MUCOSOLVAN                         /00546001/ [Concomitant]
  6. PRANLUKAST [Concomitant]

REACTIONS (2)
  - CONSTIPATION [None]
  - EOSINOPHILIC PNEUMONIA [None]
